FAERS Safety Report 9054912 (Version 1)
Quarter: 2013Q1

REPORT INFORMATION
  Report Type: Report from Study
  Country: US (occurrence: US)
  Receive Date: 20130208
  Receipt Date: 20130208
  Transmission Date: 20140127
  Serious: No
  Sender: FDA-Public Use
  Company Number: US-VERTEX PHARMACEUTICALS INC.-2013-001642

PATIENT
  Age: 61 None
  Sex: Male

DRUGS (8)
  1. VX-950 (TELAPREVIR) [Suspect]
     Indication: HEPATITIS C
     Dosage: 750 MG, TID
     Route: 048
  2. PEGASYS [Suspect]
     Indication: HEPATITIS C
  3. RIBAVIRIN [Suspect]
     Indication: HEPATITIS C
  4. ACYCLOVIR [Concomitant]
     Dosage: 200 MG, UNK
  5. RANITIDINE [Concomitant]
     Dosage: 150 MG, UNK
  6. ACAI [Concomitant]
     Dosage: 25 MG, UNK
  7. CHOLESTIN [Concomitant]
     Dosage: 600 MG, UNK
  8. TESTIM [Concomitant]
     Dosage: 1 % (50MG)

REACTIONS (1)
  - Adverse event [Unknown]
